FAERS Safety Report 25535435 (Version 2)
Quarter: 2025Q3

REPORT INFORMATION
  Report Type: Spontaneous
  Country: EU (occurrence: EU)
  Receive Date: 20250709
  Receipt Date: 20250717
  Transmission Date: 20251020
  Serious: Yes (Other)
  Sender: ROCHE
  Company Number: EU-ROCHE-10000333171

PATIENT
  Sex: Female

DRUGS (1)
  1. TOCILIZUMAB [Suspect]
     Active Substance: TOCILIZUMAB
     Indication: Rheumatoid arthritis
     Dosage: (STRENGTH REPORTED AS: 162 MG/09ML)
     Route: 058

REACTIONS (4)
  - Breast cancer [Unknown]
  - Impaired healing [Unknown]
  - Malaise [Unknown]
  - Injection site reaction [Not Recovered/Not Resolved]
